FAERS Safety Report 7210846-2 (Version None)
Quarter: 2011Q1

REPORT INFORMATION
  Report Type: 
  Country: None (occurrence: None)
  Receive Date: 20110105
  Receipt Date: 20101230
  Transmission Date: 20110831
  Serious: Yes (Hospitalization)
  Sender: FDA-Public Use
  Company Number: US-PURDUE-USA-2010-0061677

PATIENT
  Sex: Female

DRUGS (1)
  1. OXYCONTIN [Suspect]
     Indication: PAIN
     Dosage: 160 MG, Q12H

REACTIONS (4)
  - DRUG INEFFECTIVE [None]
  - NERVE INJURY [None]
  - ABDOMINAL PAIN UPPER [None]
  - HEADACHE [None]
